FAERS Safety Report 16463439 (Version 1)
Quarter: 2019Q2

REPORT INFORMATION
  Report Type: Spontaneous
  Country: CA (occurrence: CA)
  Receive Date: 20190621
  Receipt Date: 20190621
  Transmission Date: 20190711
  Serious: Yes (Hospitalization)
  Sender: FDA-Public Use
  Company Number: CA-TEVA-2019-CA-1067034

PATIENT
  Age: 15 Year
  Sex: Male

DRUGS (2)
  1. PROPOFOL. [Suspect]
     Active Substance: PROPOFOL
     Indication: GENERAL ANAESTHESIA
     Route: 065
  2. FENTANYL. [Concomitant]
     Active Substance: FENTANYL
     Indication: PRODUCT USED FOR UNKNOWN INDICATION

REACTIONS (6)
  - Focal dyscognitive seizures [Recovered/Resolved]
  - Intentional product use issue [Recovered/Resolved]
  - Agitation [Recovered/Resolved]
  - Dissociative disorder [Recovered/Resolved]
  - Dysphoria [Recovered/Resolved]
  - Somnolence [Recovered/Resolved]
